FAERS Safety Report 6300494-0 (Version None)
Quarter: 2009Q3

REPORT INFORMATION
  Report Type: 
  Country: None (occurrence: None)
  Receive Date: 20090803
  Receipt Date: 20090720
  Transmission Date: 20100115
  Serious: Yes (Other)
  Sender: FDA-Public Use
  Company Number: JHP200900226

PATIENT
  Sex: Female

DRUGS (1)
  1. PITOCIN [Suspect]
     Indication: POSTPARTUM HAEMORRHAGE
     Dosage: INTRAVENOUS
     Route: 042

REACTIONS (3)
  - COMA [None]
  - CONVULSION [None]
  - HYPONATRAEMIA [None]
